FAERS Safety Report 12295752 (Version 1)
Quarter: 2016Q2

REPORT INFORMATION
  Report Type: Spontaneous
  Country: US (occurrence: US)
  Receive Date: 20160422
  Receipt Date: 20160422
  Transmission Date: 20160815
  Serious: Yes (Other)
  Sender: FDA-Public Use
  Company Number: US-MUNDIPHARMA DS AND PHARMACOVIGILANCE-USA-2016-0128875

PATIENT
  Sex: Female

DRUGS (5)
  1. COCAINE [Suspect]
     Active Substance: COCAINE
     Indication: DRUG ABUSE
     Route: 065
  2. OXYCONTIN [Suspect]
     Active Substance: OXYCODONE HYDROCHLORIDE
     Indication: DRUG ABUSE
     Route: 048
  3. PERCOCET                           /00446701/ [Suspect]
     Active Substance: ACETAMINOPHEN\OXYCODONE HYDROCHLORIDE\OXYCODONE TEREPHTHALATE
     Indication: DRUG ABUSE
     Route: 048
  4. HEROIN [Suspect]
     Active Substance: DIACETYLMORPHINE
     Indication: DRUG ABUSE
     Route: 065
  5. VICODIN [Suspect]
     Active Substance: ACETAMINOPHEN\HYDROCODONE BITARTRATE
     Indication: PRODUCT USED FOR UNKNOWN INDICATION
     Route: 048

REACTIONS (6)
  - Substance abuse [Unknown]
  - Detoxification [Unknown]
  - Skin discolouration [Unknown]
  - Alopecia [Unknown]
  - Asthenia [Unknown]
  - Substance dependence [Unknown]
